FAERS Safety Report 5697867-6 (Version None)
Quarter: 2008Q2

REPORT INFORMATION
  Report Type: 
  Country: None (occurrence: None)
  Receive Date: 20080404
  Receipt Date: 20080404
  Transmission Date: 20081010
  Serious: Yes (Hospitalization, Other)
  Sender: FDA-Public Use
  Company Number: None

PATIENT
  Age: 56 Year
  Sex: Female

DRUGS (2)
  1. ISONIAZID [Suspect]
     Dosage: 300 MG QD
     Dates: end: 20051110
  2. PYRIDOXINE [Concomitant]

REACTIONS (9)
  - ACUTE HEPATIC FAILURE [None]
  - ASCITES [None]
  - CHOLELITHIASIS [None]
  - HEPATIC CIRRHOSIS [None]
  - HEPATOTOXICITY [None]
  - INTERNATIONAL NORMALISED RATIO INCREASED [None]
  - LIVER DISORDER [None]
  - LIVER INJURY [None]
  - SPLENOMEGALY [None]
